FAERS Safety Report 7959887-8 (Version None)
Quarter: 2011Q4

REPORT INFORMATION
  Report Type: 
  Country: None (occurrence: None)
  Receive Date: 20111206
  Receipt Date: 20111129
  Transmission Date: 20120403
  Serious: Yes (Hospitalization)
  Sender: FDA-Public Use
  Company Number: PHHY2011GB104323

PATIENT
  Age: 23 Year
  Sex: Female

DRUGS (1)
  1. PHENOXYMETHYL PENICILLIN [Suspect]
     Dosage: UNK
     Dates: start: 20111124

REACTIONS (2)
  - GASTRIC HAEMORRHAGE [None]
  - DYSPNOEA [None]
